FAERS Safety Report 5123815-3 (Version None)
Quarter: 2006Q4

REPORT INFORMATION
  Report Type: 
  Country: None (occurrence: None)
  Receive Date: 20061010
  Receipt Date: 20060929
  Transmission Date: 20070319
  Serious: Yes (Hospitalization, Other)
  Sender: FDA-Public Use
  Company Number: US-AVENTIS-200618291US

PATIENT
  Sex: Female

DRUGS (5)
  1. LANTUS [Suspect]
     Dates: start: 20060701
  2. ZANTAC [Concomitant]
     Dosage: DOSE: UNK
  3. DYAZIDE [Concomitant]
     Dosage: DOSE: UNK
  4. ASPIRIN [Concomitant]
  5. MULTI-VITAMINS [Concomitant]
     Dosage: DOSE: UNK

REACTIONS (3)
  - BLOOD GLUCOSE FLUCTUATION [None]
  - BLOOD GLUCOSE INCREASED [None]
  - LUNG NEOPLASM MALIGNANT [None]
